FAERS Safety Report 5576591-4 (Version None)
Quarter: 2007Q4

REPORT INFORMATION
  Report Type: 
  Country: None (occurrence: None)
  Receive Date: 20071228
  Receipt Date: 20071130
  Transmission Date: 20080405
  Serious: No
  Sender: FDA-Public Use
  Company Number: A0695618A

PATIENT
  Age: 56 Year
  Sex: Female

DRUGS (3)
  1. FLOVENT [Suspect]
     Indication: COUGH
     Dosage: 110MCG VARIABLE DOSE
     Route: 055
     Dates: start: 20071120
  2. ALLEGRA [Concomitant]
  3. BLOOD PRESSURE MEDICATION [Concomitant]

REACTIONS (2)
  - APHONIA [None]
  - EXPIRED DRUG ADMINISTERED [None]
